FAERS Safety Report 25651341 (Version 1)
Quarter: 2025Q3

REPORT INFORMATION
  Report Type: Spontaneous
  Country: EU (occurrence: EU)
  Receive Date: 20250806
  Receipt Date: 20250806
  Transmission Date: 20251020
  Serious: Yes (Hospitalization, Other)
  Sender: ORGANON
  Company Number: EU-ORGANON-O2508NOR000054

PATIENT
  Sex: Male

DRUGS (5)
  1. REMERON [Suspect]
     Active Substance: MIRTAZAPINE
     Indication: Sleep disorder
     Route: 048
     Dates: start: 2018
  2. REMERON [Suspect]
     Active Substance: MIRTAZAPINE
     Indication: Mental disorder
  3. MELATONIN [Suspect]
     Active Substance: MELATONIN
     Indication: Sleep disorder
     Dates: start: 2018
  4. MELATONIN [Suspect]
     Active Substance: MELATONIN
     Indication: Mental disorder
  5. PARALGIN FORTE [CODEINE PHOSPHATE;PARACETAMOL] [Concomitant]
     Indication: Pain

REACTIONS (3)
  - Lung disorder [Unknown]
  - Cognitive disorder [Not Recovered/Not Resolved]
  - Product use in unapproved indication [Unknown]

NARRATIVE: CASE EVENT DATE: 20180101
